FAERS Safety Report 19816108 (Version 1)
Quarter: 2021Q3

REPORT INFORMATION
  Report Type: Spontaneous
  Country: US (occurrence: US)
  Receive Date: 20210909
  Receipt Date: 20210909
  Transmission Date: 20211014
  Serious: No
  Sender: FDA-Public Use
  Company Number: US-TEVA-2021-US-1943810

PATIENT
  Age: 73 Year
  Sex: Female
  Weight: 51.25 kg

DRUGS (8)
  1. FEXOFENADINE 180 MG 571 [Suspect]
     Active Substance: FEXOFENADINE HYDROCHLORIDE
     Indication: RHINORRHOEA
  2. FEXOFENADINE 180 MG 571 [Suspect]
     Active Substance: FEXOFENADINE HYDROCHLORIDE
     Indication: LACRIMATION INCREASED
  3. TUMS [Concomitant]
     Active Substance: CALCIUM CARBONATE
  4. FEXOFENADINE 180 MG 571 [Suspect]
     Active Substance: FEXOFENADINE HYDROCHLORIDE
     Indication: SNEEZING
  5. FEXOFENADINE 180 MG 571 [Suspect]
     Active Substance: FEXOFENADINE HYDROCHLORIDE
     Indication: NASAL PRURITUS
  6. FEXOFENADINE 180 MG 571 [Suspect]
     Active Substance: FEXOFENADINE HYDROCHLORIDE
     Indication: SEASONAL ALLERGY
     Route: 048
     Dates: start: 20210805, end: 20210811
  7. FEXOFENADINE 180 MG 571 [Suspect]
     Active Substance: FEXOFENADINE HYDROCHLORIDE
     Indication: EYE PRURITUS
  8. FEXOFENADINE 180 MG 571 [Suspect]
     Active Substance: FEXOFENADINE HYDROCHLORIDE
     Indication: THROAT IRRITATION

REACTIONS (3)
  - Dizziness [Not Recovered/Not Resolved]
  - Taste disorder [Not Recovered/Not Resolved]
  - Product administered to patient of inappropriate age [Unknown]
